FAERS Safety Report 11792831 (Version 1)
Quarter: 2015Q4

REPORT INFORMATION
  Report Type: Spontaneous
  Country: IN (occurrence: None)
  Receive Date: 20151130
  Receipt Date: 20151130
  Transmission Date: 20160305
  Serious: Yes (Other)
  Sender: FDA-Public Use
  Company Number: 2015R1-106526

PATIENT
  Age: 43 Year
  Sex: Female

DRUGS (2)
  1. CYCLOPHOSPHAMIDE. [Concomitant]
     Active Substance: CYCLOPHOSPHAMIDE
  2. DOXORUBICIN (DOXORUBICIN HYDROCHLORIDE) UNKNOWN [Suspect]
     Active Substance: DOXORUBICIN HYDROCHLORIDE
     Indication: BREAST CANCER
     Dosage: 6 CYCLES OF 60 MG/M^2 AT THE INTERVAL OF 21 DAYS

REACTIONS (2)
  - Acute promyelocytic leukaemia [None]
  - Second primary malignancy [None]
